FAERS Safety Report 10047877 (Version 2)
Quarter: 2014Q2

REPORT INFORMATION
  Report Type: Spontaneous
  Country: US (occurrence: US)
  Receive Date: 20140331
  Receipt Date: 20140611
  Transmission Date: 20141212
  Serious: No
  Sender: FDA-Public Use
  Company Number: US-009507513-1403USA008360

PATIENT
  Age: 15 Year
  Sex: Female
  Weight: 72.56 kg

DRUGS (1)
  1. CLARITIN [Suspect]
     Indication: SEASONAL ALLERGY
     Dosage: 20 MG, QD
     Route: 048

REACTIONS (2)
  - Fatigue [Unknown]
  - Accidental overdose [Unknown]
